FAERS Safety Report 9027102 (Version 2)
Quarter: 2013Q3

REPORT INFORMATION
  Report Type: Spontaneous
  Country: US (occurrence: US)
  Receive Date: 20130123
  Receipt Date: 20130808
  Transmission Date: 20140515
  Serious: Yes (Hospitalization, Disabling)
  Sender: FDA-Public Use
  Company Number: US-US-EMD SERONO, INC.-7011612

PATIENT
  Age: 32 Year
  Sex: Female
  Weight: 66 kg

DRUGS (6)
  1. REBIF [Suspect]
     Indication: MULTIPLE SCLEROSIS
     Route: 058
     Dates: start: 20090814, end: 201001
  2. REBIF [Suspect]
     Route: 058
     Dates: start: 20100129, end: 20100705
  3. REBIF [Suspect]
     Route: 058
     Dates: start: 20110616
  4. ALEVE [Suspect]
     Indication: PREMEDICATION
     Dates: start: 2009, end: 20100705
  5. AZITHROMYCIN [Suspect]
     Indication: PRODUCT USED FOR UNKNOWN INDICATION
  6. TYLENOL /00020001/ [Suspect]
     Indication: PRODUCT USED FOR UNKNOWN INDICATION

REACTIONS (8)
  - Hepatic failure [Recovering/Resolving]
  - Bedridden [Recovering/Resolving]
  - Hepatic steatosis [Unknown]
  - Hypotension [Unknown]
  - Menorrhagia [Recovering/Resolving]
  - Multiple sclerosis [Not Recovered/Not Resolved]
  - Injection site erythema [Not Recovered/Not Resolved]
  - Injection site bruising [Not Recovered/Not Resolved]
